FAERS Safety Report 24612187 (Version 1)
Quarter: 2024Q4

REPORT INFORMATION
  Report Type: Spontaneous
  Country: US (occurrence: US)
  Receive Date: 20241113
  Receipt Date: 20241113
  Transmission Date: 20250114
  Serious: No
  Sender: BIOGEN
  Company Number: US-BIOGEN-2024BI01265227

PATIENT
  Sex: Female

DRUGS (1)
  1. VUMERITY [Suspect]
     Active Substance: DIROXIMEL FUMARATE
     Indication: Multiple sclerosis
     Route: 050
     Dates: start: 20230425

REACTIONS (3)
  - Product dose omission issue [Recovered/Resolved]
  - Multiple sclerosis [Not Recovered/Not Resolved]
  - Flushing [Not Recovered/Not Resolved]

NARRATIVE: CASE EVENT DATE: 20230101
